FAERS Safety Report 19976598 (Version 2)
Quarter: 2021Q4

REPORT INFORMATION
  Report Type: Spontaneous
  Country: US (occurrence: US)
  Receive Date: 20211021
  Receipt Date: 20211028
  Transmission Date: 20220303
  Serious: No
  Sender: FDA-Public Use
  Company Number: US-SANOFI-00814799

PATIENT
  Age: 84 Year
  Sex: Female

DRUGS (1)
  1. TOUJEO [Suspect]
     Active Substance: INSULIN GLARGINE
     Indication: Diabetes mellitus
     Dosage: 60 IU, QD (NIGHT)
     Route: 065

REACTIONS (4)
  - Fatigue [Unknown]
  - Dyspnoea [Unknown]
  - Injection site pain [Unknown]
  - Device mechanical issue [Unknown]
